FAERS Safety Report 7021402-3 (Version None)
Quarter: 2010Q3

REPORT INFORMATION
  Report Type: 
  Country: None (occurrence: None)
  Receive Date: 20100929
  Receipt Date: 20100921
  Transmission Date: 20110219
  Serious: Yes (Other)
  Sender: FDA-Public Use
  Company Number: US-ABBOTT-10P-163-0666532-00

PATIENT
  Sex: Female
  Weight: 58.566 kg

DRUGS (11)
  1. HUMIRA [Suspect]
     Indication: CROHN'S DISEASE
     Dates: start: 20080101
  2. PENTAZA [Concomitant]
     Indication: CROHN'S DISEASE
  3. NEXIUM [Concomitant]
     Indication: GASTRIC DISORDER
  4. CULTURELLE [Concomitant]
     Indication: PROPHYLAXIS
  5. CALCIUM WITH VITAMIN D [Concomitant]
     Indication: VITAMIN SUPPLEMENTATION
  6. FOLIC ACID [Concomitant]
     Indication: VITAMIN SUPPLEMENTATION
  7. VERAPAMIL [Concomitant]
     Indication: MIGRAINE
  8. LEXAPRO [Concomitant]
     Indication: DEPRESSION
  9. VISTARIL [Concomitant]
     Indication: INSOMNIA
  10. FEMCOM [Concomitant]
     Indication: CONTRACEPTION
  11. PROAIR HFA [Concomitant]
     Indication: ASTHMA

REACTIONS (3)
  - CROHN'S DISEASE [None]
  - RECTAL HAEMORRHAGE [None]
  - WEIGHT DECREASED [None]
